FAERS Safety Report 24758940 (Version 2)
Quarter: 2025Q1

REPORT INFORMATION
  Report Type: Spontaneous
  Country: JP (occurrence: JP)
  Receive Date: 20241220
  Receipt Date: 20250306
  Transmission Date: 20250409
  Serious: Yes (Hospitalization, Other)
  Sender: ASTELLAS
  Company Number: JP-ASTELLAS-2024-AER-023165

PATIENT
  Age: 71 Year
  Sex: Female
  Weight: 72 kg

DRUGS (31)
  1. PADCEV [Suspect]
     Active Substance: ENFORTUMAB VEDOTIN-EJFV
     Indication: Bladder cancer
     Route: 042
     Dates: start: 20241106, end: 20241113
  2. PADCEV [Suspect]
     Active Substance: ENFORTUMAB VEDOTIN-EJFV
     Indication: Malignant neoplasm of renal pelvis
  3. KEYTRUDA [Suspect]
     Active Substance: PEMBROLIZUMAB
     Indication: Transitional cell carcinoma
     Route: 042
     Dates: start: 20241106
  4. KEYTRUDA [Suspect]
     Active Substance: PEMBROLIZUMAB
     Route: 042
     Dates: start: 202412
  5. Glimepiride tablet 1mg [Concomitant]
     Indication: Hyperglycaemia
     Dosage: 1 TABLET, ONCE DAILY, TAKEN IMMEDIATELY AFTER BREAKFAST
     Route: 048
     Dates: end: 20241120
  6. Tenelia tablet 20mg [Concomitant]
     Indication: Hyperglycaemia
     Dosage: 1 TABLET, ONCE DAILY, TAKEN IMMEDIATELY AFTER BREAKFAST
     Route: 048
     Dates: end: 20241120
  7. Rosuvastatin tablet 2.5mg [Concomitant]
     Indication: Product used for unknown indication
     Dosage: 1 TABLET ONCE DAILY, AFTER DINNER, ADMINISTERED EVERY OTHER DAY
     Route: 065
  8. Heparinoid Oil-Based Cream 0.3? [Concomitant]
     Indication: Product used for unknown indication
     Route: 065
  9. Amlodipine OD tablet 2.5mg [Concomitant]
     Indication: Hypertension
     Dosage: 1 TABLET, ONCE DAILY, AFTER BREAKFAST
     Route: 065
     Dates: start: 20241111
  10. CLOBETASOL [Concomitant]
     Active Substance: CLOBETASOL
     Indication: Skin disorder
     Route: 065
     Dates: start: 20241120
  11. BEPOTASTINE [Concomitant]
     Active Substance: BEPOTASTINE
     Indication: Skin disorder
     Dosage: 4 OF 10 MG TABLETS TWICE DAILY AFTER BREAKFAST AND DINNER
     Route: 048
     Dates: start: 20241122
  12. BEPOTASTINE [Concomitant]
     Active Substance: BEPOTASTINE
     Indication: Pruritus
     Dosage: 2 TABLETS TWICE DAILY AFTER BREAKFAST AND DINNER
     Route: 048
     Dates: start: 20241120
  13. INSULIN GLARGINE [Concomitant]
     Active Substance: INSULIN GLARGINE
     Indication: Hyperglycaemia
     Route: 065
     Dates: start: 20241121
  14. INSULIN GLARGINE [Concomitant]
     Active Substance: INSULIN GLARGINE
     Route: 065
     Dates: start: 20241122
  15. INSULIN GLARGINE [Concomitant]
     Active Substance: INSULIN GLARGINE
     Route: 065
     Dates: start: 20241123
  16. INSULIN GLARGINE [Concomitant]
     Active Substance: INSULIN GLARGINE
     Route: 065
     Dates: start: 20241124
  17. INSULIN GLARGINE [Concomitant]
     Active Substance: INSULIN GLARGINE
     Route: 065
     Dates: start: 20241125
  18. INSULIN GLARGINE [Concomitant]
     Active Substance: INSULIN GLARGINE
     Route: 065
     Dates: start: 20241126
  19. INSULIN GLARGINE [Concomitant]
     Active Substance: INSULIN GLARGINE
     Route: 065
     Dates: start: 20241127
  20. INSULIN GLARGINE [Concomitant]
     Active Substance: INSULIN GLARGINE
     Route: 065
     Dates: start: 20241128
  21. INSULIN GLARGINE [Concomitant]
     Active Substance: INSULIN GLARGINE
     Route: 065
     Dates: start: 20241129
  22. INSULIN GLARGINE [Concomitant]
     Active Substance: INSULIN GLARGINE
     Route: 065
     Dates: start: 20241130
  23. INSULIN LISPRO [Concomitant]
     Active Substance: INSULIN LISPRO
     Indication: Hyperglycaemia
     Route: 065
     Dates: start: 20241121
  24. INSULIN LISPRO [Concomitant]
     Active Substance: INSULIN LISPRO
     Route: 065
     Dates: start: 20241122
  25. INSULIN LISPRO [Concomitant]
     Active Substance: INSULIN LISPRO
     Route: 065
     Dates: start: 20241124
  26. INSULIN LISPRO [Concomitant]
     Active Substance: INSULIN LISPRO
     Route: 065
     Dates: start: 20241125
  27. INSULIN LISPRO [Concomitant]
     Active Substance: INSULIN LISPRO
     Route: 065
     Dates: start: 20241126
  28. INSULIN LISPRO [Concomitant]
     Active Substance: INSULIN LISPRO
     Route: 065
     Dates: start: 20241127
  29. INSULIN LISPRO [Concomitant]
     Active Substance: INSULIN LISPRO
     Route: 065
     Dates: start: 20241128
  30. INSULIN LISPRO [Concomitant]
     Active Substance: INSULIN LISPRO
     Route: 065
     Dates: start: 20241130
  31. CEFTRIAXONE [Concomitant]
     Active Substance: CEFTRIAXONE
     Indication: Pyrexia
     Route: 065
     Dates: start: 20241121, end: 20241126

REACTIONS (6)
  - Hyperglycaemia [Recovered/Resolved]
  - Erythema multiforme [Recovered/Resolved]
  - Skin disorder [Recovering/Resolving]
  - Pruritus [Recovered/Resolved]
  - Rash [Unknown]
  - Blister [Unknown]

NARRATIVE: CASE EVENT DATE: 20241120
